FAERS Safety Report 5586993-8 (Version None)
Quarter: 2008Q1

REPORT INFORMATION
  Report Type: 
  Country: None (occurrence: None)
  Receive Date: 20080110
  Receipt Date: 20080103
  Transmission Date: 20080703
  Serious: Yes (Hospitalization, Congenital Anomaly)
  Sender: FDA-Public Use
  Company Number: A0678477A

PATIENT
  Sex: Male
  Weight: 2.2 kg

DRUGS (4)
  1. PAXIL [Suspect]
     Indication: DRUG USE FOR UNKNOWN INDICATION
     Dates: start: 19950101
  2. FOLIC ACID [Concomitant]
  3. PRENATAL VITAMINS [Concomitant]
  4. AMPICILLIN [Concomitant]
     Dates: start: 19960116

REACTIONS (25)
  - ANXIETY [None]
  - AORTIC STENOSIS [None]
  - ATRIAL SEPTAL DEFECT [None]
  - ATTENTION DEFICIT/HYPERACTIVITY DISORDER [None]
  - CARDIAC MURMUR [None]
  - CARDIOMEGALY [None]
  - CHEST PAIN [None]
  - COARCTATION OF THE AORTA [None]
  - DILATATION ATRIAL [None]
  - DRUG EXPOSURE DURING PREGNANCY [None]
  - DYSPNOEA [None]
  - FACIAL PALSY [None]
  - GAIT DISTURBANCE [None]
  - INCONTINENCE [None]
  - INTERCOSTAL RETRACTION [None]
  - LEFT VENTRICULAR HYPERTROPHY [None]
  - MITRAL VALVE INCOMPETENCE [None]
  - PERSISTENT FOETAL CIRCULATION [None]
  - PREMATURE BABY [None]
  - PULMONARY CONGESTION [None]
  - RESPIRATORY DISTRESS [None]
  - SINUS ARRHYTHMIA [None]
  - SINUS BRADYCARDIA [None]
  - VENTRICULAR EXTRASYSTOLES [None]
  - VENTRICULAR SEPTAL DEFECT [None]
